FAERS Safety Report 13880873 (Version 7)
Quarter: 2018Q1

REPORT INFORMATION
  Report Type: Report from Study
  Country: US (occurrence: US)
  Receive Date: 20170818
  Receipt Date: 20180311
  Transmission Date: 20180508
  Serious: Yes (Hospitalization, Other)
  Sender: FDA-Public Use
  Company Number: US-TEVA-790868USA

PATIENT
  Age: 55 Year
  Sex: Female

DRUGS (7)
  1. CINQAIR [Suspect]
     Active Substance: RESLIZUMAB
     Indication: ASTHMA
     Route: 065
     Dates: start: 20170117, end: 201802
  2. FLOVENT [Concomitant]
     Active Substance: FLUTICASONE PROPIONATE
  3. CELLCEPT [Concomitant]
     Active Substance: MYCOPHENOLATE MOFETIL\MYCOPHENOLATE MOFETIL HYDROCHLORIDE
     Dosage: 2000 MILLIGRAM DAILY;
     Dates: end: 2018
  4. IMURAN [Concomitant]
     Active Substance: AZATHIOPRINE
     Dates: end: 2018
  5. METHOTREXATE. [Concomitant]
     Active Substance: METHOTREXATE
     Dates: start: 2018
  6. PREDNISONE. [Suspect]
     Active Substance: PREDNISONE
  7. OXYGEN. [Concomitant]
     Active Substance: OXYGEN

REACTIONS (5)
  - Respiratory syncytial virus infection [Unknown]
  - Aspergillus infection [Recovered/Resolved]
  - Oropharyngeal pain [Unknown]
  - Papillary thyroid cancer [Unknown]
  - Thyroid mass [Not Recovered/Not Resolved]

NARRATIVE: CASE EVENT DATE: 2017
